FAERS Safety Report 15906656 (Version 3)
Quarter: 2019Q1

REPORT INFORMATION
  Report Type: Report from Study
  Country: US (occurrence: US)
  Receive Date: 20190204
  Receipt Date: 20190219
  Transmission Date: 20190417
  Serious: No
  Sender: FDA-Public Use
  Company Number: US-SA-2019SA026919

PATIENT
  Age: 45 Year
  Sex: Female

DRUGS (2)
  1. DUPILUMAB [Suspect]
     Active Substance: DUPILUMAB
     Indication: ASTHMA
     Dosage: 600 MG, 1X
     Route: 058
     Dates: start: 20190123, end: 20190123
  2. DUPILUMAB [Suspect]
     Active Substance: DUPILUMAB
     Dosage: 300 MG, QOW
     Route: 058
     Dates: start: 20190207

REACTIONS (6)
  - Injection site mass [Recovered/Resolved]
  - Pain in extremity [Unknown]
  - Burning sensation [Unknown]
  - Injection site pain [Recovered/Resolved]
  - Dry eye [Unknown]
  - Injection site pain [Unknown]

NARRATIVE: CASE EVENT DATE: 20190123
